FAERS Safety Report 4366924-9 (Version None)
Quarter: 2004Q2

REPORT INFORMATION
  Report Type: 
  Country: None (occurrence: None)
  Receive Date: 20040528
  Receipt Date: 20020403
  Transmission Date: 20050107
  Serious: Yes (Hospitalization)
  Sender: FDA-Public Use
  Company Number: US-BRISTOL-MYERS SQUIBB COMPANY-11802154

PATIENT
  Age: 49 Year
  Sex: Male

DRUGS (9)
  1. TEQUIN [Suspect]
     Indication: PAIN
     Route: 048
     Dates: start: 20020313, end: 20020320
  2. TEQUIN [Suspect]
     Route: 048
     Dates: start: 20020313, end: 20020320
  3. TEQUIN [Suspect]
     Indication: PYREXIA
     Route: 048
     Dates: start: 20020313, end: 20020320
  4. TEQUIN [Suspect]
     Indication: COUGH
     Route: 048
     Dates: start: 20020313, end: 20020320
  5. TEQUIN [Suspect]
     Indication: BRONCHITIS
     Route: 048
     Dates: start: 20020313, end: 20020320
  6. HYZAAR [Concomitant]
     Indication: HYPERTENSION
  7. NAPROXEN [Concomitant]
  8. TYLENOL [Concomitant]
  9. MEDROL [Concomitant]
     Dosage: ^DOSEPACK^

REACTIONS (4)
  - BILIARY TRACT DISORDER [None]
  - CHOLESTASIS [None]
  - HEPATOTOXICITY [None]
  - PANCREATITIS ACUTE [None]
